FAERS Safety Report 6505950-8 (Version None)
Quarter: 2009Q4

REPORT INFORMATION
  Report Type: 
  Country: None (occurrence: None)
  Receive Date: 20091218
  Receipt Date: 20091211
  Transmission Date: 20100525
  Serious: No
  Sender: FDA-Public Use
  Company Number: US-B.I. PHARMACEUTICALS,INC./RIDGEFIELD-2009-BP-14477BP

PATIENT
  Sex: Female

DRUGS (3)
  1. SPIRIVA [Suspect]
     Indication: PLEURAL EFFUSION
     Dosage: 18 MCG
     Route: 055
     Dates: start: 20091106, end: 20091120
  2. LASIX [Concomitant]
     Indication: PLEURAL EFFUSION
  3. FOSAMAX [Concomitant]
     Indication: BONE DENSITY DECREASED

REACTIONS (1)
  - APHONIA [None]
